FAERS Safety Report 8529651-X (Version None)
Quarter: 2012Q3

REPORT INFORMATION
  Report Type: 
  Country: None (occurrence: None)
  Receive Date: 20120710
  Receipt Date: 20120628
  Transmission Date: 20120928
  Serious: Yes (Other)
  Sender: FDA-Public Use
  Company Number: AUR-APL-2012-02713

PATIENT
  Age: 16 Year
  Sex: Male

DRUGS (2)
  1. FLUOXETINE [Suspect]
     Indication: MAJOR DEPRESSION
     Dosage: 20 MG (20 MG, 1 IN 1 D), ORAL
     Route: 048
  2. CITALOPRAM HYDROBROMIDE [Suspect]
     Indication: MAJOR DEPRESSION
     Dates: start: 20070801

REACTIONS (15)
  - EDUCATIONAL PROBLEM [None]
  - COMPULSIONS [None]
  - MENTAL DISORDER [None]
  - DREAMY STATE [None]
  - HOMICIDE [None]
  - MOVEMENT DISORDER [None]
  - FEELING ABNORMAL [None]
  - THINKING ABNORMAL [None]
  - AGGRESSION [None]
  - DRUG DOSE OMISSION [None]
  - INCORRECT DOSE ADMINISTERED [None]
  - BLUNTED AFFECT [None]
  - SUBSTANCE USE [None]
  - CONDUCT DISORDER [None]
  - DISSOCIATION [None]
